FAERS Safety Report 18072299 (Version 1)
Quarter: 2020Q3

REPORT INFORMATION
  Report Type: Spontaneous
  Country: US (occurrence: US)
  Receive Date: 20200726
  Receipt Date: 20200726
  Transmission Date: 20201103
  Serious: Yes (Other)
  Sender: FDA-Public Use
  Company Number: None

PATIENT
  Age: 32 Year
  Sex: Female
  Weight: 58.5 kg

DRUGS (2)
  1. CLOBAZAM TAB 10MG, CR3?02?E?09/ QCPPX16Z, W02680862851 / 6278152800003 [Suspect]
     Active Substance: CLOBAZAM
     Indication: SEIZURE
     Dosage: ?          QUANTITY:3 TABLET(S);?
     Route: 048
     Dates: start: 20200701, end: 20200726
  2. VAMPAT [Concomitant]

REACTIONS (6)
  - Product colour issue [None]
  - Therapeutic response decreased [None]
  - Product formulation issue [None]
  - Seizure [None]
  - Generalised tonic-clonic seizure [None]
  - Product taste abnormal [None]

NARRATIVE: CASE EVENT DATE: 20200701
